FAERS Safety Report 19955879 (Version 1)
Quarter: 2021Q4

REPORT INFORMATION
  Report Type: Spontaneous
  Country: AE (occurrence: AE)
  Receive Date: 20211014
  Receipt Date: 20211014
  Transmission Date: 20220303
  Serious: Yes (Other)
  Sender: FDA-Public Use
  Company Number: AE-JNJFOC-20211012959

PATIENT
  Sex: Male

DRUGS (1)
  1. ESKETAMINE [Suspect]
     Active Substance: ESKETAMINE
     Indication: Depression
     Dates: start: 20211005

REACTIONS (6)
  - Depressed level of consciousness [Recovered/Resolved]
  - Pupil dilation procedure [Recovered/Resolved]
  - Thirst [Recovered/Resolved]
  - Nasal congestion [Recovered/Resolved]
  - Dizziness [Recovered/Resolved]
  - Dissociation [Recovered/Resolved]

NARRATIVE: CASE EVENT DATE: 20211005
